FAERS Safety Report 9836310 (Version 2)
Quarter: 2014Q1

REPORT INFORMATION
  Report Type: Spontaneous
  Country: US (occurrence: US)
  Receive Date: 20140123
  Receipt Date: 20140224
  Transmission Date: 20141002
  Serious: Yes (Hospitalization)
  Sender: FDA-Public Use
  Company Number: US-BIOGENIDEC-2014BI006784

PATIENT
  Age: 63 Year
  Sex: Female

DRUGS (1)
  1. AVONEX [Suspect]
     Indication: MULTIPLE SCLEROSIS
     Route: 030
     Dates: start: 20040717

REACTIONS (8)
  - Foot fracture [Recovered/Resolved]
  - Local swelling [Unknown]
  - Ankle fracture [Recovered/Resolved]
  - Joint dislocation [Recovered/Resolved]
  - Sensation of heaviness [Unknown]
  - Balance disorder [Unknown]
  - Gait disturbance [Unknown]
  - Asthenia [Unknown]
